APPROVED DRUG PRODUCT: VENLAFAXINE HYDROCHLORIDE
Active Ingredient: VENLAFAXINE HYDROCHLORIDE
Strength: EQ 150MG BASE
Dosage Form/Route: TABLET, EXTENDED RELEASE;ORAL
Application: A205468 | Product #002 | TE Code: AB
Applicant: MPP PHARMA LLC
Approved: Mar 24, 2017 | RLD: No | RS: No | Type: RX